FAERS Safety Report 20899891 (Version 1)
Quarter: 2022Q2

REPORT INFORMATION
  Report Type: Spontaneous
  Country: US (occurrence: US)
  Receive Date: 20220601
  Receipt Date: 20220601
  Transmission Date: 20220721
  Serious: No
  Sender: FDA-Public Use
  Company Number: US-BRISTOL-MYERS SQUIBB COMPANY-2022-050426

PATIENT
  Age: 64 Year
  Sex: Female

DRUGS (1)
  1. POMALYST [Suspect]
     Active Substance: POMALIDOMIDE
     Indication: Plasma cell myeloma
     Dosage: DOSE: 4 MILLIGRAM, FREQ: OTHER
     Route: 048
     Dates: start: 20220405, end: 20220526

REACTIONS (6)
  - Balance disorder [Unknown]
  - Tremor [Unknown]
  - Joint swelling [Unknown]
  - Dyspnoea [Unknown]
  - Confusional state [Unknown]
  - Toxicity to various agents [Unknown]

NARRATIVE: CASE EVENT DATE: 20220405
